FAERS Safety Report 6967279-3 (Version None)
Quarter: 2010Q3

REPORT INFORMATION
  Report Type: 
  Country: None (occurrence: None)
  Receive Date: 20100907
  Receipt Date: 20100825
  Transmission Date: 20110219
  Serious: No
  Sender: FDA-Public Use
  Company Number: US-JNJFOC-20100900020

PATIENT
  Sex: Female
  Weight: 56.7 kg

DRUGS (5)
  1. FENTANYL CITRATE [Suspect]
     Indication: MULTIPLE SCLEROSIS
     Route: 062
  2. FENTANYL CITRATE [Suspect]
     Route: 062
  3. FENTANYL CITRATE [Suspect]
     Indication: MULTIPLE SCLEROSIS
     Route: 062
  4. UNKNOWN MEDICATION [Concomitant]
     Indication: CARDIAC FAILURE CONGESTIVE
     Route: 065
  5. UNKNOWN MEDICATION [Concomitant]
     Indication: MULTIPLE SCLEROSIS
     Route: 065

REACTIONS (6)
  - DRUG INEFFECTIVE [None]
  - DYSPHONIA [None]
  - NAUSEA [None]
  - PAIN [None]
  - SEDATION [None]
  - WRONG TECHNIQUE IN DRUG USAGE PROCESS [None]
